FAERS Safety Report 25627860 (Version 2)
Quarter: 2025Q3

REPORT INFORMATION
  Report Type: Spontaneous
  Country: RU (occurrence: RU)
  Receive Date: 20250731
  Receipt Date: 20250805
  Transmission Date: 20251020
  Serious: Yes (Other)
  Sender: NOVARTIS
  Company Number: RU-002147023-NVSC2025RU100381

PATIENT
  Age: 64 Year
  Sex: Female

DRUGS (1)
  1. RIBOCICLIB [Suspect]
     Active Substance: RIBOCICLIB
     Indication: Breast cancer
     Dosage: 600 MG, QD (3 TABLETS) (ON DAYS 1- 21, BREAK  FOR 7 DAYS,  28-DAY  CYCLE)
     Route: 048
     Dates: start: 20230526

REACTIONS (4)
  - Pneumonia viral [Recovered/Resolved]
  - Pyrexia [Unknown]
  - Cough [Unknown]
  - Pulmonary mass [Recovered/Resolved]

NARRATIVE: CASE EVENT DATE: 20231001
